FAERS Safety Report 8132860-5 (Version None)
Quarter: 2012Q1

REPORT INFORMATION
  Report Type: 
  Country: None (occurrence: None)
  Receive Date: 20120207
  Receipt Date: 20120123
  Transmission Date: 20120608
  Serious: Yes (Death, Other)
  Sender: FDA-Public Use
  Company Number: EU-2012-10014

PATIENT
  Age: 84 Year
  Sex: Male

DRUGS (4)
  1. CILOSTAZOL [Suspect]
     Indication: OFF LABEL USE
     Dosage: 200 MG MILLIGRAM(S), DAILY DOSE, ORAL
     Route: 048
     Dates: start: 20111117, end: 20111219
  2. CILOSTAZOL [Suspect]
     Indication: ARTERIAL INSUFFICIENCY
     Dosage: 200 MG MILLIGRAM(S), DAILY DOSE, ORAL
     Route: 048
     Dates: start: 20111117, end: 20111219
  3. TORASEMIDE (TORASEMIDE) [Concomitant]
  4. PANTOPRAZOLE [Concomitant]

REACTIONS (1)
  - RECTAL HAEMORRHAGE [None]
